FAERS Safety Report 4975747-9 (Version None)
Quarter: 2006Q2

REPORT INFORMATION
  Report Type: 
  Country: None (occurrence: None)
  Receive Date: 20060411
  Receipt Date: 20060329
  Transmission Date: 20061013
  Serious: Yes (Other)
  Sender: FDA-Public Use
  Company Number: 2006044917

PATIENT
  Age: 15 Year

DRUGS (1)
  1. SOMATROPIN (SOMATROPIN) [Suspect]
     Indication: BODY HEIGHT BELOW NORMAL

REACTIONS (1)
  - HYPERTROPHIC CARDIOMYOPATHY [None]
